FAERS Safety Report 20679234 (Version 2)
Quarter: 2022Q2

REPORT INFORMATION
  Report Type: Spontaneous
  Country: CA (occurrence: CA)
  Receive Date: 20220406
  Receipt Date: 20220613
  Transmission Date: 20220720
  Serious: Yes (Other)
  Sender: FDA-Public Use
  Company Number: CA-PFIZER INC-2021422003

PATIENT
  Age: 38 Year
  Sex: Female
  Weight: 81.7 kg

DRUGS (9)
  1. XELJANZ XR [Suspect]
     Active Substance: TOFACITINIB CITRATE
     Indication: Rheumatoid arthritis
     Dosage: 11 MG, 1X/DAY
     Route: 048
     Dates: start: 20210329
  2. ATENOLOL [Concomitant]
     Active Substance: ATENOLOL
     Dosage: 25MG - 50MG OD DEPENDING PALPITATIONS (60-80 BPM)
  3. LEFLUNOMIDE [Concomitant]
     Active Substance: LEFLUNOMIDE
     Dosage: 20 MG
     Route: 065
  4. MELOXICAM [Concomitant]
     Active Substance: MELOXICAM
     Dosage: UNK
  5. METHIMAZOLE [Concomitant]
     Active Substance: METHIMAZOLE
     Dosage: 10 MG, 1X/DAY
  6. OXYBUTYNIN [Concomitant]
     Active Substance: OXYBUTYNIN
     Dosage: 5 MG
     Route: 065
  7. PREDNISONE [Concomitant]
     Active Substance: PREDNISONE
     Dosage: UNK
  8. TORADOL [Concomitant]
     Active Substance: KETOROLAC TROMETHAMINE
     Dosage: 1 DF, AS NEEDED
     Route: 065
  9. TRICIRA LO [Concomitant]
     Dosage: UNK

REACTIONS (9)
  - Rheumatoid arthritis [Recovered/Resolved]
  - Basedow^s disease [Unknown]
  - Therapeutic product effect incomplete [Unknown]
  - Pain [Unknown]
  - Contusion [Recovering/Resolving]
  - Condition aggravated [Unknown]
  - Movement disorder [Unknown]
  - Pain [Unknown]
  - Foot deformity [Not Recovered/Not Resolved]

NARRATIVE: CASE EVENT DATE: 20211101
